FAERS Safety Report 5278982-8 (Version None)
Quarter: 2007Q1

REPORT INFORMATION
  Report Type: 
  Country: None (occurrence: None)
  Receive Date: 20070328
  Receipt Date: 20070320
  Transmission Date: 20070707
  Serious: Yes (Hospitalization)
  Sender: FDA-Public Use
  Company Number: NL-AVENTIS-200711191EU

PATIENT
  Age: 81 Year
  Sex: Male

DRUGS (8)
  1. FUROSEMIDE [Suspect]
     Route: 048
     Dates: start: 20060531
  2. TILDIEM [Suspect]
     Route: 048
     Dates: start: 19970901
  3. KEPPRA [Suspect]
     Route: 048
     Dates: start: 20070116
  4. THYRAX                             /00068001/ [Concomitant]
     Route: 048
  5. THYRAX                             /00068001/ [Concomitant]
     Route: 048
  6. CARBASALAATCALCIUM [Concomitant]
  7. CARBAMAZEPINUM [Concomitant]
     Route: 048
  8. DIPHANTOINE-Z [Concomitant]
     Dosage: DOSE: 1 DF

REACTIONS (3)
  - LIVER DISORDER [None]
  - METABOLIC ENCEPHALOPATHY [None]
  - RENAL DISORDER [None]
